FAERS Safety Report 25681301 (Version 5)
Quarter: 2025Q4

REPORT INFORMATION
  Report Type: Report from Study
  Country: US (occurrence: US)
  Receive Date: 20250814
  Receipt Date: 20251120
  Transmission Date: 20260118
  Serious: Yes (Hospitalization, Other)
  Sender: MALLINCKRODT
  Company Number: US-MALLINCKRODT-MNK202504433

PATIENT
  Age: 87 Year
  Sex: Female
  Weight: 172 kg

DRUGS (2)
  1. CORTICOTROPIN [Suspect]
     Active Substance: CORTICOTROPIN
     Indication: Rheumatoid arthritis
     Dosage: 40 UNITS
     Route: 058
     Dates: start: 20250707, end: 202509
  2. CORTICOTROPIN [Suspect]
     Active Substance: CORTICOTROPIN
     Dosage: 40 UNITS
     Dates: start: 202509

REACTIONS (6)
  - Hospitalisation [Unknown]
  - Rheumatoid arthritis [Unknown]
  - Memory impairment [Unknown]
  - Injection site pruritus [Not Recovered/Not Resolved]
  - Fluid retention [Unknown]
  - Contraindicated product prescribed [Unknown]

NARRATIVE: CASE EVENT DATE: 20250101
